FAERS Safety Report 4315609-3 (Version None)
Quarter: 2004Q1

REPORT INFORMATION
  Report Type: 
  Country: None (occurrence: None)
  Receive Date: 20040309
  Receipt Date: 20040219
  Transmission Date: 20041129
  Serious: Yes (Other)
  Sender: FDA-Public Use
  Company Number: USA040259911

PATIENT
  Age: 4 Year
  Sex: Male
  Weight: 14 kg

DRUGS (6)
  1. STRATTERA [Suspect]
     Indication: ATTENTION DEFICIT/HYPERACTIVITY DISORDER
     Dosage: 18 MG/ 1 DAY
     Dates: start: 20030801
  2. TEGRETOL [Concomitant]
  3. ADDERALL 10 [Concomitant]
  4. DEPAKOTE [Concomitant]
  5. DECADRON [Concomitant]
  6. CORTEF [Concomitant]

REACTIONS (4)
  - BLOOD CORTISOL INCREASED [None]
  - DRUG INTERACTION [None]
  - RENIN DECREASED [None]
  - RENIN INCREASED [None]
